FAERS Safety Report 4548088-1 (Version None)
Quarter: 2004Q4

REPORT INFORMATION
  Report Type: 
  Country: None (occurrence: None)
  Receive Date: 20041220
  Receipt Date: 20040413
  Transmission Date: 20050328
  Serious: Yes (Hospitalization, Other)
  Sender: FDA-Public Use
  Company Number: USA040463727

PATIENT
  Age: 71 Year
  Sex: Female
  Weight: 91 kg

DRUGS (4)
  1. HUMALOG [Suspect]
     Dates: start: 20010101
  2. HUMULIN R [Suspect]
     Dates: start: 20010101
  3. QUINIDINE HCL [Concomitant]
  4. LANTUS [Concomitant]

REACTIONS (10)
  - BLOOD BLISTER [None]
  - CATHETERISATION CARDIAC [None]
  - CONTUSION [None]
  - DIFFICULTY IN WALKING [None]
  - DYSPNOEA [None]
  - HYPERSENSITIVITY [None]
  - MUSCLE CRAMP [None]
  - MUSCLE SPASMS [None]
  - NEUROPATHY [None]
  - WEIGHT INCREASED [None]
